FAERS Safety Report 7891196-8 (Version None)
Quarter: 2011Q4

REPORT INFORMATION
  Report Type: 
  Country: None (occurrence: None)
  Receive Date: 20111103
  Receipt Date: 20110801
  Transmission Date: 20120403
  Serious: No
  Sender: FDA-Public Use
  Company Number: US-AMGEN-USASP2011039066

PATIENT
  Age: 36 Year
  Sex: Female

DRUGS (1)
  1. ENBREL [Suspect]
     Indication: RHEUMATOID ARTHRITIS
     Dosage: 50 MG, QWK
     Dates: start: 20100917, end: 20110713

REACTIONS (11)
  - PAIN IN EXTREMITY [None]
  - SKIN DISCOLOURATION [None]
  - MIGRAINE [None]
  - HYPERHIDROSIS [None]
  - BACK PAIN [None]
  - ARTHRALGIA [None]
  - VOMITING [None]
  - DEHYDRATION [None]
  - PAIN [None]
  - ASTHENIA [None]
  - CHILLS [None]
